FAERS Safety Report 4369937-6 (Version None)
Quarter: 2004Q2

REPORT INFORMATION
  Report Type: 
  Country: None (occurrence: None)
  Receive Date: 20040525
  Receipt Date: 20040510
  Transmission Date: 20050107
  Serious: Yes (Life-Threatening)
  Sender: FDA-Public Use
  Company Number: EMADSS2001005646

PATIENT
  Age: 16 Day

DRUGS (1)
  1. DAKTARIN            (MICONAZOLE) [Suspect]
     Indication: ORAL CANDIDIASIS
     Dosage: 2.5 ML, 1 IN 1 AS NECESSARY, ORAL
     Route: 048
     Dates: start: 20010808, end: 20010808

REACTIONS (3)
  - APNOEA [None]
  - CYANOSIS [None]
  - OBSTRUCTIVE AIRWAYS DISORDER [None]
